FAERS Safety Report 19614286 (Version 1)
Quarter: 2021Q3

REPORT INFORMATION
  Report Type: Spontaneous
  Country: US (occurrence: US)
  Receive Date: 20210727
  Receipt Date: 20210727
  Transmission Date: 20211014
  Serious: No
  Sender: FDA-Public Use
  Company Number: US-OSMOTICA_PHARMACEUTICAL_US_LLC-POI0573202000579

PATIENT
  Sex: Female

DRUGS (2)
  1. DIVIGEL [Suspect]
     Active Substance: ESTRADIOL
     Indication: HORMONE REPLACEMENT THERAPY
     Dosage: APPLIED TO FOREARM
     Route: 062
     Dates: start: 202010, end: 20201031
  2. DIVIGEL [Suspect]
     Active Substance: ESTRADIOL
     Dosage: APPLIED TO FOREARM
     Route: 062
     Dates: start: 20201101

REACTIONS (2)
  - Product administered at inappropriate site [Unknown]
  - Product dispensing error [Unknown]

NARRATIVE: CASE EVENT DATE: 202010
